FAERS Safety Report 5164997-7 (Version None)
Quarter: 2006Q4

REPORT INFORMATION
  Report Type: 
  Country: None (occurrence: None)
  Receive Date: 20061205
  Receipt Date: 20001023
  Transmission Date: 20070319
  Serious: Yes (Hospitalization)
  Sender: FDA-Public Use
  Company Number: FR-BOEHRINGER INGELHEIM GMBH, GERMANY-2000-FF-S0619

PATIENT
  Sex: Male
  Weight: 3.4 kg

DRUGS (15)
  1. VIRAMUNE [Suspect]
     Indication: HUMAN IMMUNODEFICIENCY VIRUS TRANSMISSION
     Route: 048
     Dates: start: 20000308, end: 20000308
  2. VIRAMUNE [Suspect]
     Indication: HIV INFECTION
     Route: 064
     Dates: end: 20000306
  3. VIDEX [Suspect]
     Indication: HUMAN IMMUNODEFICIENCY VIRUS TRANSMISSION
     Route: 064
     Dates: end: 20000306
  4. ZERIT [Suspect]
     Indication: HUMAN IMMUNODEFICIENCY VIRUS TRANSMISSION
     Route: 064
     Dates: end: 20000306
  5. CRIXIVAN [Suspect]
     Indication: HUMAN IMMUNODEFICIENCY VIRUS TRANSMISSION
     Route: 064
  6. NORVIR [Suspect]
     Indication: HUMAN IMMUNODEFICIENCY VIRUS TRANSMISSION
     Route: 064
  7. SUSTIVA [Concomitant]
     Indication: HIV INFECTION
     Route: 064
  8. COMBIVIR [Concomitant]
     Indication: HIV INFECTION
     Route: 064
  9. INVIRASE [Concomitant]
     Indication: HIV INFECTION
     Route: 064
  10. RETROVIR [Concomitant]
     Indication: HIV INFECTION
     Route: 064
  11. BACTRIM [Concomitant]
     Route: 064
  12. GYNOPEVARYL [Concomitant]
     Route: 064
  13. LOXEN [Concomitant]
     Route: 064
  14. SALBUTAMOL [Concomitant]
     Route: 064
  15. SPASFON [Concomitant]
     Route: 064

REACTIONS (15)
  - ABNORMAL BEHAVIOUR [None]
  - ASPARTATE AMINOTRANSFERASE INCREASED [None]
  - BLOOD CREATINE PHOSPHOKINASE INCREASED [None]
  - BLOOD LACTATE DEHYDROGENASE INCREASED [None]
  - CAESAREAN SECTION [None]
  - COMMUNICATION DISORDER [None]
  - DEPRESSION [None]
  - DRUG EXPOSURE DURING PREGNANCY [None]
  - GASTROINTESTINAL DISORDER [None]
  - GASTROINTESTINAL HAEMORRHAGE [None]
  - HAEMATOCHEZIA [None]
  - HYPERTRIGLYCERIDAEMIA [None]
  - NEONATAL DISORDER [None]
  - NEUTROPENIA [None]
  - SPEECH DISORDER [None]
